FAERS Safety Report 14330132 (Version 2)
Quarter: 2018Q1

REPORT INFORMATION
  Report Type: Spontaneous
  Country: US (occurrence: US)
  Receive Date: 20171227
  Receipt Date: 20180104
  Transmission Date: 20180509
  Serious: Yes (Other)
  Sender: FDA-Public Use
  Company Number: US-BIOMARINAP-US-2017-116517

PATIENT
  Age: 13 Year
  Sex: Female
  Weight: 56.64 kg

DRUGS (3)
  1. NORMAL SALINE [Concomitant]
     Active Substance: SODIUM CHLORIDE
     Indication: PREMEDICATION
     Dosage: 500 UNK, UNK
  2. VIMIZIM [Suspect]
     Active Substance: ELOSULFASE ALFA
     Indication: MUCOPOLYSACCHARIDOSIS IV
     Dosage: UNK, QW
     Route: 042
     Dates: start: 20171120
  3. BENADRYL [Concomitant]
     Active Substance: DIPHENHYDRAMINE HYDROCHLORIDE
     Indication: PREMEDICATION
     Dosage: 25 MG, UNK
     Route: 042

REACTIONS (9)
  - Chest discomfort [Recovered/Resolved]
  - Nausea [Recovered/Resolved]
  - Abdominal pain upper [Not Recovered/Not Resolved]
  - Hyperhidrosis [Recovering/Resolving]
  - Angioedema [Not Recovered/Not Resolved]
  - Vomiting [Recovered/Resolved]
  - Dyspnoea [Recovering/Resolving]
  - Asthenia [Unknown]
  - Drug hypersensitivity [Not Recovered/Not Resolved]

NARRATIVE: CASE EVENT DATE: 20171220
